FAERS Safety Report 19242129 (Version 1)
Quarter: 2021Q2

REPORT INFORMATION
  Report Type: Report from Study
  Country: US (occurrence: US)
  Receive Date: 20210510
  Receipt Date: 20210510
  Transmission Date: 20210717
  Serious: No
  Sender: FDA-Public Use
  Company Number: NVSC2021US104367

PATIENT
  Sex: Female

DRUGS (1)
  1. KISQALI [Suspect]
     Active Substance: RIBOCICLIB
     Indication: BREAST CANCER
     Dosage: 400 MG
     Route: 048

REACTIONS (4)
  - Wrong technique in product usage process [Unknown]
  - White blood cell count decreased [Unknown]
  - Facial pain [Unknown]
  - Headache [Unknown]
